FAERS Safety Report 26139490 (Version 1)
Quarter: 2025Q4

REPORT INFORMATION
  Report Type: Spontaneous
  Country: BR (occurrence: BR)
  Receive Date: 20251210
  Receipt Date: 20251210
  Transmission Date: 20260117
  Serious: Yes (Other)
  Sender: ACCORD
  Company Number: BR-MLMSERVICE-20251121-PI722620-00221-1

PATIENT
  Age: 38 Year
  Sex: Female

DRUGS (1)
  1. METOPROLOL [Suspect]
     Active Substance: METOPROLOL
     Indication: Product used for unknown indication

REACTIONS (3)
  - Hypertensive crisis [Recovered/Resolved]
  - Condition aggravated [Recovered/Resolved]
  - Maternal exposure during pregnancy [Unknown]
